FAERS Safety Report 5740595-9 (Version None)
Quarter: 2008Q2

REPORT INFORMATION
  Report Type: 
  Country: None (occurrence: None)
  Receive Date: 20080516
  Receipt Date: 20080506
  Transmission Date: 20081010
  Serious: Yes (Hospitalization, Congenital Anomaly)
  Sender: FDA-Public Use
  Company Number: A0687266A

PATIENT
  Sex: Male
  Weight: 3 kg

DRUGS (4)
  1. PAXIL CR [Suspect]
     Indication: ANXIETY
     Dosage: 12.5MG PER DAY
     Dates: start: 20030201, end: 20060201
  2. VITAMIN TAB [Concomitant]
  3. TYLENOL [Concomitant]
  4. ZOLOFT [Concomitant]
     Dates: start: 20040209

REACTIONS (30)
  - ASPIRATION [None]
  - BREATH HOLDING [None]
  - CHOKING [None]
  - CONGENITAL TRACHEOMALACIA [None]
  - CONVULSION [None]
  - CYANOSIS [None]
  - DEVELOPMENTAL DELAY [None]
  - DROOLING [None]
  - DRUG EXPOSURE DURING PREGNANCY [None]
  - DYSMORPHISM [None]
  - DYSPHAGIA [None]
  - DYSPNOEA [None]
  - EATING DISORDER [None]
  - GASTROOESOPHAGEAL REFLUX DISEASE [None]
  - HEART RATE DECREASED [None]
  - HYPOTONIA [None]
  - HYPOXIA [None]
  - MICROCEPHALY [None]
  - MIXED RECEPTIVE-EXPRESSIVE LANGUAGE DISORDER [None]
  - PNEUMONIA ASPIRATION [None]
  - PSYCHOMOTOR SKILLS IMPAIRED [None]
  - RESPIRATORY ARREST [None]
  - RESPIRATORY DISTRESS [None]
  - SKIN DISCOLOURATION [None]
  - SLEEP APNOEA SYNDROME [None]
  - SPEECH DISORDER DEVELOPMENTAL [None]
  - STRIDOR [None]
  - SYNCOPE [None]
  - TRACHEOMALACIA [None]
  - WHEEZING [None]
